FAERS Safety Report 16189848 (Version 1)
Quarter: 2019Q2

REPORT INFORMATION
  Report Type: Spontaneous
  Country: US (occurrence: US)
  Receive Date: 20190308
  Receipt Date: 20190308
  Transmission Date: 20190711
  Serious: Yes (Other)
  Sender: FDA-Public Use
  Company Number: None

PATIENT
  Age: 55 Year
  Sex: Female

DRUGS (1)
  1. NEW U LIFE SOMADERM TRANSDERMAL GEL MAXIMUM STRENGTH HOMEOPATHIC HUMA [Suspect]
     Active Substance: HOMEOPATHICS
     Dosage: ?          OTHER DOSE:3.5 FLUID OUNCES B;?
     Dates: start: 20180225, end: 20180802

REACTIONS (2)
  - Endometrial cancer [None]
  - Ovarian cancer [None]

NARRATIVE: CASE EVENT DATE: 201806
